FAERS Safety Report 8572911-7 (Version None)
Quarter: 2012Q3

REPORT INFORMATION
  Report Type: 
  Country: None (occurrence: None)
  Receive Date: 20120806
  Receipt Date: 20120730
  Transmission Date: 20120928
  Serious: Yes (Hospitalization, Disabling, Other)
  Sender: FDA-Public Use
  Company Number: US-MERCK-1109USA01911

PATIENT

DRUGS (6)
  1. FOSAMAX [Suspect]
     Dosage: 70 MG, UNK
     Route: 048
     Dates: start: 20081107, end: 20100508
  2. FOSAMAX [Suspect]
     Indication: OSTEOPOROSIS
     Dosage: 10 MG, QD
     Route: 048
     Dates: start: 20000101, end: 20050813
  3. FOSAMAX [Suspect]
     Indication: OSTEOPENIA
     Dosage: 70 MG, QW
     Route: 048
     Dates: start: 20051112, end: 20080205
  4. FOSAMAX [Suspect]
     Dosage: UNK MG, UNK
     Route: 048
     Dates: start: 20000101, end: 20100101
  5. FOSAMAX [Suspect]
     Dosage: 70 MG, UNK
     Route: 048
     Dates: start: 20080331, end: 20080803
  6. FOSAMAX [Suspect]
     Dosage: 70 MG, UNK
     Route: 048
     Dates: start: 20100806

REACTIONS (26)
  - FALL [None]
  - TOOTH DISORDER [None]
  - RHINORRHOEA [None]
  - HEPATIC CYST [None]
  - OVARIAN NEOPLASM [None]
  - GALLBLADDER DISORDER [None]
  - ROAD TRAFFIC ACCIDENT [None]
  - MUSCULAR WEAKNESS [None]
  - FEMUR FRACTURE [None]
  - CHEST PAIN [None]
  - SPINAL OSTEOARTHRITIS [None]
  - ABDOMINAL DISCOMFORT [None]
  - LOW TURNOVER OSTEOPATHY [None]
  - CHRONIC OBSTRUCTIVE PULMONARY DISEASE [None]
  - OSTEOPOROSIS [None]
  - CYST [None]
  - HYPERLIPIDAEMIA [None]
  - SCOLIOSIS [None]
  - HAEMORRHAGIC ANAEMIA [None]
  - ANXIETY [None]
  - MUSCLE STRAIN [None]
  - DIVERTICULUM INTESTINAL [None]
  - ARTHRITIS [None]
  - DIZZINESS [None]
  - PAIN IN EXTREMITY [None]
  - BACK PAIN [None]
